FAERS Safety Report 17399037 (Version 3)
Quarter: 2020Q3

REPORT INFORMATION
  Report Type: Spontaneous
  Country: US (occurrence: US)
  Receive Date: 20200210
  Receipt Date: 20200709
  Transmission Date: 20201102
  Serious: Yes (Other)
  Sender: FDA-Public Use
  Company Number: US-009507513-2002USA000693

PATIENT
  Sex: Female

DRUGS (1)
  1. NEXPLANON [Suspect]
     Active Substance: ETONOGESTREL
     Dosage: 1 IMPLANT
     Route: 059
     Dates: start: 2014

REACTIONS (3)
  - Brain death [Not Recovered/Not Resolved]
  - Accident [Unknown]
  - Incorrect product administration duration [Unknown]

NARRATIVE: CASE EVENT DATE: 2017
